FAERS Safety Report 25892574 (Version 1)
Quarter: 2025Q4

REPORT INFORMATION
  Report Type: Spontaneous
  Country: US (occurrence: US)
  Receive Date: 20251007
  Receipt Date: 20251007
  Transmission Date: 20260119
  Serious: No
  Sender: CB FLEET
  Company Number: US-PRESTIGE-202409-US-003138

PATIENT
  Sex: Female

DRUGS (2)
  1. MONISTAT 7 [Suspect]
     Active Substance: MICONAZOLE NITRATE
     Indication: Fungal infection
     Dosage: USED FOR 2 NIGHTS
     Route: 067
  2. FISH OIL [Concomitant]
     Active Substance: FISH OIL

REACTIONS (1)
  - Vaginal haemorrhage [Not Recovered/Not Resolved]
